FAERS Safety Report 8262651-6 (Version None)
Quarter: 2012Q1

REPORT INFORMATION
  Report Type: 
  Country: None (occurrence: None)
  Receive Date: 20120327
  Receipt Date: 20110330
  Transmission Date: 20120608
  Serious: Yes (Other)
  Sender: FDA-Public Use
  Company Number: PHHY2011US26534

PATIENT
  Sex: Female

DRUGS (1)
  1. GLEEVEC [Suspect]
     Indication: GASTRIC CANCER
     Dosage: 400 MG, DAILY, ORAL
     Route: 048

REACTIONS (4)
  - OCULAR HYPERAEMIA [None]
  - EYE SWELLING [None]
  - EYE HAEMORRHAGE [None]
  - EYE DISCHARGE [None]
